FAERS Safety Report 5097482-1 (Version None)
Quarter: 2006Q3

REPORT INFORMATION
  Report Type: 
  Country: None (occurrence: None)
  Receive Date: 20060901
  Receipt Date: 20060815
  Transmission Date: 20061208
  Serious: Yes (Hospitalization, Other)
  Sender: FDA-Public Use
  Company Number: US200511002414

PATIENT
  Age: 64 Year
  Sex: Female
  Weight: 49.9 kg

DRUGS (2)
  1. ZYPREXA [Suspect]
     Indication: DEPRESSION
     Dosage: 20 MG, ORAL
     Route: 048
     Dates: start: 19990101, end: 20040801
  2. TENORMIN [Concomitant]

REACTIONS (5)
  - BLADDER DISORDER [None]
  - DIABETES MELLITUS NON-INSULIN-DEPENDENT [None]
  - HYPERGLYCAEMIA [None]
  - INSULIN RESISTANCE [None]
  - PANCREATITIS CHRONIC [None]
